FAERS Safety Report 16119666 (Version 3)
Quarter: 2019Q4

REPORT INFORMATION
  Report Type: Spontaneous
  Country: JP (occurrence: JP)
  Receive Date: 20190326
  Receipt Date: 20191108
  Transmission Date: 20200122
  Serious: Yes (Other)
  Sender: FDA-Public Use
  Company Number: JP-UCBSA-2019011964

PATIENT
  Age: 82 Year

DRUGS (12)
  1. SENNOSIDES. [Concomitant]
     Active Substance: SENNOSIDES
     Indication: CONSTIPATION
     Dosage: 12 MG, QD(BEFORE BEDTIME)
     Dates: start: 20170627
  2. MOSAPRIDE CITRATE [Concomitant]
     Active Substance: MOSAPRIDE CITRATE
     Indication: CHRONIC GASTRITIS
     Dosage: 5 MG, TID(AFTER EACH MEAL)
     Dates: start: 20170829
  3. ASTAT [LANOCONAZOLE] [Concomitant]
     Indication: TINEA CRURIS
     Dosage: UNK, ONCE DAILY (QD)
     Dates: start: 20170829
  4. HEPARINOID [Concomitant]
     Active Substance: CHONDROITIN SULFATE (BOVINE)
     Indication: ASTEATOSIS
     Dosage: UNK, ONCE DAILY (QD)
     Dates: start: 20180117
  5. DONEPEZIL HYDROCHLORIDE. [Concomitant]
     Active Substance: DONEPEZIL HYDROCHLORIDE
     Indication: DEMENTIA
     Dosage: 3 MG, QD(AFTER BREAKFAST)
     Dates: start: 20171004, end: 20171017
  6. XYZAL [Suspect]
     Active Substance: LEVOCETIRIZINE DIHYDROCHLORIDE
     Indication: PRURITUS
     Dosage: 5 MILLIGRAM, ONCE DAILY (QD) (BEFORE BEDTIME)
     Route: 048
     Dates: start: 20180117, end: 20180402
  7. MENESIT [Concomitant]
     Active Substance: CARBIDOPA\LEVODOPA
     Indication: PARKINSON^S DISEASE
     Dosage: 100 MG, TID(AFTER EACH MEAL)
     Dates: start: 20170627
  8. URIEF [Concomitant]
     Active Substance: SILODOSIN
     Indication: BENIGN PROSTATIC HYPERPLASIA
     Dosage: 4 MG, BID(AFTER BREAKFAST AND DINNER)
     Dates: start: 20180117
  9. URIEF [Concomitant]
     Active Substance: SILODOSIN
     Indication: DYSURIA
  10. RIVOTRIL [Concomitant]
     Active Substance: CLONAZEPAM
     Indication: RAPID EYE MOVEMENT SLEEP BEHAVIOUR DISORDER
     Dosage: UNK
  11. URIEF [Concomitant]
     Active Substance: SILODOSIN
     Indication: URINARY RETENTION
  12. DONEPEZIL HYDROCHLORIDE. [Concomitant]
     Active Substance: DONEPEZIL HYDROCHLORIDE
     Dosage: 3 MG, QD(AFTER BREAKFAST)
     Dates: start: 20171018

REACTIONS (2)
  - Rapid eye movement sleep behaviour disorder [Unknown]
  - Drug-induced liver injury [Unknown]
